FAERS Safety Report 16453880 (Version 1)
Quarter: 2019Q2

REPORT INFORMATION
  Report Type: Other
  Country: PL (occurrence: PL)
  Receive Date: 20190620
  Receipt Date: 20190620
  Transmission Date: 20190711
  Serious: Yes (Hospitalization)
  Sender: FDA-Public Use
  Company Number: PL-ARBOR PHARMACEUTICALS, LLC-PL-2019ARB000988

PATIENT
  Age: 80 Year
  Sex: Male

DRUGS (2)
  1. BINABIC [Suspect]
     Active Substance: BICALUTAMIDE
     Indication: PROSTATIC ADENOMA
     Dosage: UNK
     Route: 048
  2. TRIPTODUR [Suspect]
     Active Substance: TRIPTORELIN
     Indication: PROSTATIC ADENOMA
     Dosage: UNK
     Route: 058

REACTIONS (1)
  - Rash erythematous [Recovered/Resolved]

NARRATIVE: CASE EVENT DATE: 20181231
